FAERS Safety Report 16242368 (Version 1)
Quarter: 2019Q2

REPORT INFORMATION
  Report Type: Spontaneous
  Country: US (occurrence: US)
  Receive Date: 20190322
  Receipt Date: 20190322
  Transmission Date: 20190711
  Serious: No
  Sender: FDA-Public Use
  Company Number: None

PATIENT
  Age: 35 Year
  Sex: Female

DRUGS (1)
  1. IMATINIB MESYLATE 400MG [Suspect]
     Active Substance: IMATINIB MESYLATE
     Indication: LEUKAEMIA
     Route: 048
     Dates: start: 201710

REACTIONS (4)
  - Mouth swelling [None]
  - Eye swelling [None]
  - Nasal oedema [None]
  - Pruritus [None]

NARRATIVE: CASE EVENT DATE: 20190311
